FAERS Safety Report 15894855 (Version 1)
Quarter: 2019Q1

REPORT INFORMATION
  Report Type: Spontaneous
  Country: FR (occurrence: FR)
  Receive Date: 20190131
  Receipt Date: 20190131
  Transmission Date: 20190417
  Serious: Yes (Other)
  Sender: FDA-Public Use
  Company Number: FR-TEVA-2019-FR-1005930

PATIENT
  Sex: Male

DRUGS (1)
  1. LEVODOPA CARBIDOPA TEVA [Suspect]
     Active Substance: CARBIDOPA\LEVODOPA
     Dates: start: 2018

REACTIONS (4)
  - Multiple system atrophy [Unknown]
  - Apathy [Recovering/Resolving]
  - Drooling [Recovered/Resolved]
  - Product substitution issue [Unknown]
